FAERS Safety Report 9848407 (Version 1)
Quarter: 2013Q4

REPORT INFORMATION
  Report Type: Spontaneous
  Country: US (occurrence: None)
  Receive Date: 20131224
  Receipt Date: 20131224
  Transmission Date: 20140711
  Serious: Yes (Other)
  Sender: FDA-Public Use
  Company Number: PHEH2013US020592

PATIENT
  Age: 67 Year
  Sex: Male

DRUGS (12)
  1. MYFORTIC [Suspect]
     Route: 048
  2. CRESTOR (ROSUVASTATIN CALCIUM) [Concomitant]
  3. TAMSULOSIN (TAMSULOSIN) [Concomitant]
  4. MESALAMINE (MESALAZINE) [Concomitant]
  5. URSODIOL (URSODEOXYCHOLIC ACID) [Concomitant]
  6. FORTESTA (TESTOSTERONE) [Concomitant]
  7. FLUNISOLIDE (FLUNISOLIDE) [Concomitant]
  8. MULTIVITAMIN/VITAMINS NOS (VITAMINS NOS) [Concomitant]
  9. GLUCOSAMINE (GLUCOSAMINE) [Concomitant]
  10. CALCIUM (CALCIUM) [Concomitant]
  11. VITAMIN B COMPLEX (VITAMIN B COMPLEX) [Concomitant]
  12. FISH OIL (FISH OIL) [Concomitant]

REACTIONS (1)
  - Cytomegalovirus infection [None]
